FAERS Safety Report 8121157 (Version 5)
Quarter: 2014Q3

REPORT INFORMATION
  Report Type: Report from Study
  Country: BR (occurrence: BR)
  Receive Date: 20110906
  Receipt Date: 20140819
  Transmission Date: 20150326
  Serious: Yes (Hospitalization, Disabling, Other)
  Sender: FDA-Public Use
  Company Number: PHHY2011BR76076

PATIENT
  Age: 77 Year
  Sex: Female
  Weight: 40 kg

DRUGS (14)
  1. ATROVENT [Concomitant]
     Active Substance: IPRATROPIUM BROMIDE
     Indication: EMPHYSEMA
     Dosage: 20 DF, TID
     Route: 055
  2. HYDROCHLOROTHIAZIDE. [Concomitant]
     Active Substance: HYDROCHLOROTHIAZIDE
     Dosage: 1 DF, QD
     Route: 048
  3. ENALAPRIL [Concomitant]
     Active Substance: ENALAPRIL
     Indication: HYPERTENSION
     Dosage: 1 DF, BID
     Route: 048
  4. SORINE [Concomitant]
     Active Substance: SOTALOL HYDROCHLORIDE
     Indication: NASAL CONGESTION
     Dosage: UNK UKN, UNK
     Route: 045
  5. DIURIX [Concomitant]
     Dosage: UNK UKN, UNK
  6. FORASEQ [Suspect]
     Active Substance: BUDESONIDE\FORMOTEROL FUMARATE
     Indication: EMPHYSEMA
     Dosage: 1 DF, BID
     Route: 055
  7. TORSILAX [Concomitant]
     Active Substance: ACETAMINOPHEN\CAFFEINE\CARISOPRODOL\DICLOFENAC
     Indication: PAIN
     Dosage: 1 DF, QHS
     Route: 048
  8. GLIBENCLAMIDE [Concomitant]
     Active Substance: GLYBURIDE
     Dosage: UNK UKN, UNK
     Route: 048
  9. AMOXIL [Concomitant]
     Active Substance: AMOXICILLIN
     Indication: LUNG INFECTION
     Dosage: 1 DF, Q8H
  10. DIGOXIN. [Concomitant]
     Active Substance: DIGOXIN
     Dosage: UNK UKN, UNK
  11. TYLENOL [Concomitant]
     Active Substance: ACETAMINOPHEN
     Indication: PAIN
     Dosage: UNK UKN, UNK
  12. METHOTREXATE [Concomitant]
     Active Substance: METHOTREXATE
     Indication: PSORIASIS
     Dosage: 3 DF, QW
     Route: 048
  13. BETNOVATE [Concomitant]
     Active Substance: BETAMETHASONE
     Indication: PSORIASIS
     Dosage: UNK UKN, UNK
     Route: 061
  14. NEOTAREN [Concomitant]
     Dosage: UNK UKN, UNK

REACTIONS (16)
  - Lung infection [Unknown]
  - Dyspnoea [Not Recovered/Not Resolved]
  - Urinary incontinence [Not Recovered/Not Resolved]
  - Stress [Not Recovered/Not Resolved]
  - Skeletal injury [Not Recovered/Not Resolved]
  - Chest pain [Not Recovered/Not Resolved]
  - Condition aggravated [Not Recovered/Not Resolved]
  - Emphysema [Not Recovered/Not Resolved]
  - Fatigue [Not Recovered/Not Resolved]
  - Cyanosis [Not Recovered/Not Resolved]
  - Wrist fracture [Not Recovered/Not Resolved]
  - Fall [Not Recovered/Not Resolved]
  - Pulmonary oedema [Unknown]
  - Hypertension [Not Recovered/Not Resolved]
  - Back pain [Not Recovered/Not Resolved]
  - Infarction [Not Recovered/Not Resolved]

NARRATIVE: CASE EVENT DATE: 20101217
